FAERS Safety Report 18658690 (Version 3)
Quarter: 2021Q1

REPORT INFORMATION
  Report Type: Not Available
  Country: US (occurrence: US)
  Receive Date: 20201223
  Receipt Date: 20210311
  Transmission Date: 20210419
  Serious: Yes (Death, Hospitalization)
  Sender: FDA-Public Use
  Company Number: US-NEUROCRINE BIOSCIENCES INC.-2020NBI04588

PATIENT
  Age: 67 Year
  Sex: Female
  Weight: 107.14 kg

DRUGS (19)
  1. DEX4 [Concomitant]
     Dosage: CHEW 4 AS NEEDED
  2. ASPIRIN. [Concomitant]
     Active Substance: ASPIRIN
     Route: 048
  3. INSULIN [Concomitant]
     Active Substance: INSULIN NOS
     Dosage: LONG ACTING INSULIN 25 UNITS BREAKFAST AND 35 UNITS SUPPER
  4. FUROSEMIDE. [Concomitant]
     Active Substance: FUROSEMIDE
     Route: 048
  5. GABAPENTIN. [Concomitant]
     Active Substance: GABAPENTIN
     Dosage: AT NIGHT
     Route: 048
  6. HYDRALAZINE [Concomitant]
     Active Substance: HYDRALAZINE HYDROCHLORIDE
     Indication: HYPERTENSION
     Route: 048
  7. INSULIN GLARGINE [Concomitant]
     Active Substance: INSULIN GLARGINE
     Dosage: 100 UNITS/ML CRTG 25 UNITS TWICE A DAY
     Route: 058
  8. GLUTOSE 15 [Concomitant]
     Dosage: 40% GEL
  9. INGREZZA [Suspect]
     Active Substance: VALBENAZINE
     Indication: TARDIVE DYSKINESIA
     Route: 048
     Dates: start: 20201103
  10. CITALOPRAM [Concomitant]
     Active Substance: CITALOPRAM HYDROBROMIDE
  11. ELIQUIS [Concomitant]
     Active Substance: APIXABAN
     Route: 048
  12. LISINOPRIL. [Concomitant]
     Active Substance: LISINOPRIL
     Route: 048
  13. DOCUSATE SODIUM. [Concomitant]
     Active Substance: DOCUSATE SODIUM
     Route: 048
  14. BASAGLAR [Concomitant]
     Active Substance: INSULIN GLARGINE
     Dosage: KWIKPEN U?100INSULIN 100 UNIT/ML (3 ML) INPN 25 UNITS AM AND 35 UNITS BEDTIME
     Route: 058
  15. CETRIZINE [Concomitant]
     Active Substance: CETIRIZINE HYDROCHLORIDE
  16. LACTOBACILLUS RHAMNOSUS [Concomitant]
     Active Substance: LACTOBACILLUS RHAMNOSUS
     Dosage: GG 10 BILLION CELL CAP TWICE A DAY
  17. ACETAMINOPHEN. [Concomitant]
     Active Substance: ACETAMINOPHEN
     Route: 048
  18. AMLODIPINE [Concomitant]
     Active Substance: AMLODIPINE BESYLATE
     Route: 048
  19. CYCLOBENZAPRINE. [Concomitant]
     Active Substance: CYCLOBENZAPRINE
     Route: 048

REACTIONS (2)
  - Upper respiratory tract infection [Unknown]
  - End stage renal disease [Fatal]

NARRATIVE: CASE EVENT DATE: 20210116
